FAERS Safety Report 7179122-0 (Version None)
Quarter: 2010Q4

REPORT INFORMATION
  Report Type: 
  Country: None (occurrence: None)
  Receive Date: 20101221
  Receipt Date: 20101209
  Transmission Date: 20110411
  Serious: No
  Sender: FDA-Public Use
  Company Number: US-PFIZER INC-2010169329

PATIENT
  Sex: Female

DRUGS (2)
  1. PROCARDIA XL [Suspect]
  2. NIFEDIPINE [Suspect]

REACTIONS (1)
  - DRUG INEFFECTIVE [None]
